FAERS Safety Report 7727385-2 (Version None)
Quarter: 2011Q3

REPORT INFORMATION
  Report Type: 
  Country: None (occurrence: None)
  Receive Date: 20110902
  Receipt Date: 20110830
  Transmission Date: 20111222
  Serious: Yes (Other)
  Sender: FDA-Public Use
  Company Number: US-PFIZER INC-2011203099

PATIENT

DRUGS (4)
  1. DEPAKOTE [Concomitant]
     Dosage: UNK
  2. GEODON [Suspect]
     Dosage: 20MG IN THE MORNING AND 40MG IN THE EVENING
     Route: 048
     Dates: start: 20070101, end: 20110827
  3. LISDEXAMFETAMINE [Concomitant]
     Dosage: UNK
  4. CLONIDINE [Concomitant]
     Dosage: UNK

REACTIONS (3)
  - OEDEMA MOUTH [None]
  - HYPERSENSITIVITY [None]
  - SWOLLEN TONGUE [None]
